FAERS Safety Report 12202310 (Version 7)
Quarter: 2018Q3

REPORT INFORMATION
  Report Type: Report from Study
  Country: PA (occurrence: PA)
  Receive Date: 20160322
  Receipt Date: 20180903
  Transmission Date: 20181010
  Serious: Yes (Hospitalization)
  Sender: FDA-Public Use
  Company Number: PHHY2015PA105640

PATIENT
  Sex: Male
  Weight: 37 kg

DRUGS (6)
  1. ASPIRIN. [Concomitant]
     Active Substance: ASPIRIN
     Indication: PRODUCT USED FOR UNKNOWN INDICATION
     Dosage: 100 MG, QD
     Route: 048
  2. EXJADE [Interacting]
     Active Substance: DEFERASIROX
     Dosage: 500 MG, UNK
     Route: 048
  3. EXJADE [Interacting]
     Active Substance: DEFERASIROX
     Dosage: 750 MG, UNK
     Route: 048
  4. EXJADE [Suspect]
     Active Substance: DEFERASIROX
     Indication: SICKLE CELL ANAEMIA
     Dosage: 1000 MG
     Route: 048
     Dates: start: 2015
  5. EXJADE [Interacting]
     Active Substance: DEFERASIROX
     Dosage: 500 MG, QD
     Route: 048
  6. HYDROXYUREA. [Concomitant]
     Active Substance: HYDROXYUREA
     Indication: PRODUCT USED FOR UNKNOWN INDICATION
     Dosage: 500 MG, QD
     Route: 048

REACTIONS (16)
  - Serum ferritin increased [Recovered/Resolved]
  - Lung infection [Recovering/Resolving]
  - Blood iron decreased [Unknown]
  - Pneumonia [Recovering/Resolving]
  - Sickle cell anaemia [Recovering/Resolving]
  - Drug interaction [Unknown]
  - Burning sensation [Unknown]
  - Nausea [Unknown]
  - Vomiting [Unknown]
  - Abdominal pain upper [Unknown]
  - Red blood cell count increased [Recovering/Resolving]
  - Bronchitis [Recovering/Resolving]
  - Serum ferritin decreased [Unknown]
  - Abdominal discomfort [Unknown]
  - Gastritis [Unknown]
  - Pyrexia [Recovering/Resolving]
